FAERS Safety Report 6429369-3 (Version None)
Quarter: 2009Q4

REPORT INFORMATION
  Report Type: 
  Country: None (occurrence: None)
  Receive Date: 20091105
  Receipt Date: 20090423
  Transmission Date: 20100525
  Serious: No
  Sender: FDA-Public Use
  Company Number: US-ABBOTT-09P-163-0569889-00

PATIENT
  Sex: Female
  Weight: 72.64 kg

DRUGS (12)
  1. KALETRA [Suspect]
     Indication: HIV INFECTION
     Dosage: YELLOW TABS
     Route: 048
  2. TRUVADA [Concomitant]
     Indication: HIV INFECTION
     Route: 048
  3. REMERON [Concomitant]
     Indication: BIPOLAR DISORDER
     Route: 048
  4. REMERON [Concomitant]
     Indication: DEPRESSION
  5. REMERON [Concomitant]
     Indication: ANXIETY
  6. VISTARIL [Concomitant]
     Indication: ANXIETY DISORDER
     Dosage: AT BEDTIME
     Route: 048
  7. GEODON [Concomitant]
     Indication: BIPOLAR DISORDER
     Route: 048
  8. GEODON [Concomitant]
     Indication: ANXIETY DISORDER
  9. GEODON [Concomitant]
     Indication: DEPRESSION
  10. ZYPREXA [Concomitant]
     Indication: ANXIETY DISORDER
     Route: 048
  11. ZYPREXA [Concomitant]
     Indication: DEPRESSION
  12. ZYPREXA [Concomitant]
     Indication: BIPOLAR DISORDER

REACTIONS (3)
  - DIARRHOEA [None]
  - FATIGUE [None]
  - FLATULENCE [None]
